FAERS Safety Report 25181421 (Version 1)
Quarter: 2025Q2

REPORT INFORMATION
  Report Type: Spontaneous
  Country: US (occurrence: US)
  Receive Date: 20250410
  Receipt Date: 20250410
  Transmission Date: 20250716
  Serious: No
  Sender: BIOGEN
  Company Number: US-BIOGEN-2024BI01282780

PATIENT
  Age: 44 Year
  Sex: Male

DRUGS (1)
  1. TYSABRI [Suspect]
     Active Substance: NATALIZUMAB
     Indication: Multiple sclerosis
     Route: 050
     Dates: start: 20110608, end: 20240621

REACTIONS (2)
  - Neuropathy peripheral [Not Recovered/Not Resolved]
  - Multiple sclerosis [Unknown]

NARRATIVE: CASE EVENT DATE: 20240901
